FAERS Safety Report 19877511 (Version 4)
Quarter: 2021Q4

REPORT INFORMATION
  Report Type: Report from Study
  Country: BE (occurrence: BE)
  Receive Date: 20210924
  Receipt Date: 20211130
  Transmission Date: 20220304
  Serious: Yes (Death, Hospitalization, Other)
  Sender: FDA-Public Use
  Company Number: BE-ALNYLAM PHARMACEUTICALS, INC.-ALN-2021-002306

PATIENT

DRUGS (20)
  1. PATISIRAN SODIUM [Suspect]
     Active Substance: PATISIRAN SODIUM
     Indication: Amyloidosis senile
     Dosage: 0.3 MILLIGRAM/KILOGRAM, Q3W
     Route: 042
     Dates: start: 20210505
  2. PATISIRAN SODIUM [Suspect]
     Active Substance: PATISIRAN SODIUM
     Indication: Cardiomyopathy
  3. LEVOCETIRIZINE [Concomitant]
     Active Substance: LEVOCETIRIZINE
     Indication: Prophylaxis
     Dosage: 5 MILLIGRAM, Q3W
     Route: 048
     Dates: start: 20210505
  4. ACETAMINOPHEN [Concomitant]
     Active Substance: ACETAMINOPHEN
     Indication: Prophylaxis
     Dosage: 500 MILLIGRAM, Q3W
     Dates: start: 20210505
  5. FAMOTIDINE [Concomitant]
     Active Substance: FAMOTIDINE
     Indication: Prophylaxis
     Dosage: 40 MILLIGRAM, Q3W
     Route: 048
     Dates: start: 20210505
  6. DEXAMETHASONE [Concomitant]
     Active Substance: DEXAMETHASONE
     Indication: Prophylaxis
     Dosage: 10 MILLIGRAM, Q3W
     Route: 042
     Dates: start: 20210505
  7. VITAMIN A [Concomitant]
     Active Substance: VITAMIN A
     Indication: Prophylaxis
     Dosage: 1 DOSAGE FORM (TABLET), QD
     Route: 048
     Dates: start: 20210505
  8. ASPIRIN [Concomitant]
     Active Substance: ASPIRIN
     Indication: Cardiac disorder
     Dosage: 80 MILLIGRAM, QD
     Dates: start: 20170608
  9. RIVAROXABAN [Concomitant]
     Active Substance: RIVAROXABAN
     Indication: Cardiac disorder
     Dosage: 2.5 MILLIGRAM, BID
     Route: 048
     Dates: start: 20190905
  10. NEBIVOLOL [Concomitant]
     Active Substance: NEBIVOLOL
     Indication: Cardiac disorder
     Dosage: 2.5 MILLIGRAM, QD
     Route: 048
     Dates: start: 20171011
  11. DUTASTERIDE [Concomitant]
     Active Substance: DUTASTERIDE
     Indication: Benign prostatic hyperplasia
     Dosage: 0.5 MILLIGRAM, QD
     Route: 048
     Dates: start: 20180328
  12. TAMSULOSIN HYDROCHLORIDE [Concomitant]
     Active Substance: TAMSULOSIN HYDROCHLORIDE
     Indication: Benign prostatic hyperplasia
     Dosage: 0.4 MILLIGRAM, QD
     Route: 048
     Dates: start: 20171011
  13. SERTRALINE [Concomitant]
     Active Substance: SERTRALINE HYDROCHLORIDE
     Indication: Depressed mood
     Dosage: 50 MILLIGRAM, QD
     Route: 048
     Dates: start: 20190320
  14. VALSARTAN [Concomitant]
     Active Substance: VALSARTAN
     Indication: Cardiac disorder
     Dosage: 160 MILLIGRAM, QD
     Route: 048
     Dates: start: 20140921
  15. PANTOPRAZOLE SODIUM [Concomitant]
     Active Substance: PANTOPRAZOLE SODIUM
     Indication: Gastrooesophageal reflux disease
     Dosage: 40 MILLIGRAM, BID
     Route: 048
     Dates: start: 20200831
  16. EZETIMIBE [Concomitant]
     Active Substance: EZETIMIBE
     Indication: Hypercholesterolaemia
     Dosage: 10 MILLIGRAM, QD
     Route: 048
     Dates: start: 20170927
  17. ATORVASTATIN [Concomitant]
     Active Substance: ATORVASTATIN
     Indication: Hypercholesterolaemia
     Dosage: 80 MILLIGRAM, QD
     Route: 048
     Dates: start: 20170927
  18. ACETAZOLAMIDE [Concomitant]
     Active Substance: ACETAZOLAMIDE
     Indication: Cardiac failure
     Dosage: 250 MILLIGRAM, QD
     Route: 048
     Dates: start: 20210422
  19. SPIRONOLACTONE [Concomitant]
     Active Substance: SPIRONOLACTONE
     Indication: Cardiac failure
     Dosage: 25 MILLIGRAM, QD
     Route: 048
     Dates: start: 20210422
  20. SACCHAROMYCES CEREVISIAE [Concomitant]
     Active Substance: SACCHAROMYCES CEREVISIAE
     Indication: Diarrhoea
     Dosage: 1 DOSAGE FORM (TABLET), BID
     Route: 048
     Dates: start: 20210906

REACTIONS (1)
  - Pancreatitis [Fatal]

NARRATIVE: CASE EVENT DATE: 20210910
